FAERS Safety Report 18484764 (Version 5)
Quarter: 2020Q4

REPORT INFORMATION
  Report Type: Spontaneous
  Country: JP (occurrence: JP)
  Receive Date: 20201110
  Receipt Date: 20201210
  Transmission Date: 20210114
  Serious: Yes (Death)
  Sender: FDA-Public Use
  Company Number: JP-ROCHE-2711474

PATIENT
  Age: 72 Year
  Sex: Female
  Weight: 49 kg

DRUGS (7)
  1. AVASTIN [Suspect]
     Active Substance: BEVACIZUMAB
     Indication: HEPATOCELLULAR CARCINOMA
     Route: 041
     Dates: start: 20201019, end: 20201019
  2. NEXIUM [Concomitant]
     Active Substance: ESOMEPRAZOLE MAGNESIUM
     Dosage: DOSAGE IS UNCERTAIN.
     Route: 065
  3. LIVACT [Concomitant]
     Active Substance: AMINO ACIDS, SOURCE UNSPECIFIED
     Dosage: DOSAGE IS UNCERTAIN.
     Route: 065
  4. SELOKEN [Concomitant]
     Active Substance: METOPROLOL
     Dosage: DOSAGE IS UNCERTAIN.
     Route: 065
  5. TECENTRIQ [Suspect]
     Active Substance: ATEZOLIZUMAB
     Indication: HEPATOCELLULAR CARCINOMA
     Route: 041
     Dates: start: 20201019, end: 20201019
  6. OXYCONTIN [Concomitant]
     Active Substance: OXYCODONE HYDROCHLORIDE
     Dosage: DOSAGE IS UNCERTAIN.
     Route: 065
     Dates: start: 20201019
  7. BENIDIPINE HYDROCHLORIDE [Concomitant]
     Active Substance: BENIDIPINE HYDROCHLORIDE
     Dosage: DOSAGE IS UNCERTAIN.
     Route: 065

REACTIONS (1)
  - Interstitial lung disease [Fatal]

NARRATIVE: CASE EVENT DATE: 20201103
